FAERS Safety Report 15806997 (Version 1)
Quarter: 2019Q1

REPORT INFORMATION
  Report Type: Spontaneous
  Country: US (occurrence: US)
  Receive Date: 20190110
  Receipt Date: 20190110
  Transmission Date: 20190417
  Serious: No
  Sender: FDA-Public Use
  Company Number: PHEH2019US001415

PATIENT
  Sex: Female
  Weight: 81.6 kg

DRUGS (1)
  1. NITROFURANTOIN CAPSULES USP [Suspect]
     Active Substance: NITROFURANTOIN
     Indication: URINARY TRACT INFECTION
     Dosage: 100 MG, BID
     Route: 048
     Dates: start: 20181226, end: 20181227

REACTIONS (2)
  - Pruritus generalised [Recovered/Resolved]
  - Drug hypersensitivity [Recovered/Resolved]
